FAERS Safety Report 5779744-5 (Version None)
Quarter: 2008Q2

REPORT INFORMATION
  Report Type: 
  Country: None (occurrence: None)
  Receive Date: 20080617
  Receipt Date: 20080602
  Transmission Date: 20081010
  Serious: Yes (Hospitalization)
  Sender: FDA-Public Use
  Company Number: TW-JNJFOC-20080205814

PATIENT
  Age: 72 Year
  Sex: Male

DRUGS (8)
  1. DECITABINE (DECITABINE) LYOPHILIZED POWDER [Suspect]
     Indication: ACUTE MYELOID LEUKAEMIA
     Dosage: 20 MG/M2, 1 IN 1 DAY, INTRAVENOUS
     Route: 042
     Dates: start: 20080130, end: 20080203
  2. FELODIPINE (FELODIPINE) TABLET [Concomitant]
  3. METFORMIN (METFORMIN) TABLET [Concomitant]
  4. GLIPIZIDE (GLIPIZIDE) TABLET [Concomitant]
  5. MAGNESIUM OXIDE (MAGNESIUM OXIDE) TABLET [Concomitant]
  6. SILYMARIN (SILYMARIN) TABLET [Concomitant]
  7. SENNOSIDE A+B CALCIUM (SENNOSIDE A+B CALCIUM) TABLET [Concomitant]
  8. ULTRACET (OPIOIDS) UNSPECIFIED [Concomitant]

REACTIONS (14)
  - BLOOD CULTURE POSITIVE [None]
  - DYSPNOEA EXERTIONAL [None]
  - ECTHYMA [None]
  - HAEMOGLOBIN DECREASED [None]
  - HAEMOPTYSIS [None]
  - LUNG CONSOLIDATION [None]
  - LUNG INFILTRATION [None]
  - PLATELET COUNT INCREASED [None]
  - PLEURAL EFFUSION [None]
  - PNEUMONITIS [None]
  - PSEUDOMONAS INFECTION [None]
  - PULMONARY HAEMORRHAGE [None]
  - PYREXIA [None]
  - WHITE BLOOD CELL COUNT DECREASED [None]
